FAERS Safety Report 5946642-3 (Version None)
Quarter: 2008Q4

REPORT INFORMATION
  Report Type: 
  Country: None (occurrence: None)
  Receive Date: 20081110
  Receipt Date: 20081103
  Transmission Date: 20090506
  Serious: Yes (Death, Hospitalization)
  Sender: FDA-Public Use
  Company Number: GB-ROCHE-578532

PATIENT
  Age: 65 Year
  Sex: Male
  Weight: 87 kg

DRUGS (12)
  1. NAPROXEN [Suspect]
     Indication: GOUT
     Dosage: ALSO REPORTED FOR THE TREATMENT OF ARTHRITIS
     Route: 065
     Dates: start: 20071117
  2. GEMZAR [Suspect]
     Dosage: CYCLE ONE.  DOSE ALSO REPORTED 2 DOSE FORM TWICE A DAY FOR ARTHRITIS
     Route: 065
     Dates: start: 20071120
  3. GEMZAR [Suspect]
     Route: 065
     Dates: start: 20080102, end: 20080102
  4. GEMZAR [Suspect]
     Route: 065
     Dates: start: 20080109
  5. ACETAMINOPHEN W/ CODEINE [Concomitant]
     Indication: ARTHRITIS
     Route: 048
  6. CARBOPLATIN [Concomitant]
  7. FLUTICASONE PROPIONATE [Concomitant]
  8. SALMETEROL XINAFOATE [Concomitant]
  9. IPRATROPIUM BROMIDE [Concomitant]
     Dosage: WITH SALBUTAMOL
  10. ALBUTEROL SULFATE [Concomitant]
     Dosage: WITH OPRATROPIUM BROMIDE
  11. OMEPRAZOLE [Concomitant]
  12. GABAPENTIN [Concomitant]

REACTIONS (11)
  - ALOPECIA [None]
  - BONE MARROW FAILURE [None]
  - CELLULITIS [None]
  - COUGH [None]
  - DYSPNOEA [None]
  - HYPERHIDROSIS [None]
  - MUCOSAL INFLAMMATION [None]
  - PULMONARY OEDEMA [None]
  - RASH ERYTHEMATOUS [None]
  - RENAL FAILURE ACUTE [None]
  - SEPSIS [None]
